FAERS Safety Report 7233026-3 (Version None)
Quarter: 2011Q1

REPORT INFORMATION
  Report Type: 
  Country: None (occurrence: None)
  Receive Date: 20110119
  Receipt Date: 20110107
  Transmission Date: 20110831
  Serious: Yes (Hospitalization)
  Sender: FDA-Public Use
  Company Number: PHHO2011FR00762

PATIENT
  Sex: Male
  Weight: 77 kg

DRUGS (10)
  1. ALISKIREN [Suspect]
     Indication: CORONARY ARTERY DISEASE
  2. COVERSUM [Concomitant]
     Indication: HYPERTENSION
  3. BLINDED NO TREATMENT RECEIVED [Suspect]
     Indication: CORONARY ARTERY DISEASE
     Dosage: CODE NOT BROKEN
     Route: 048
     Dates: start: 20100526
  4. BLINDED ALISKIREN [Suspect]
     Indication: CORONARY ARTERY DISEASE
     Dosage: CODE NOT BROKEN
     Route: 048
     Dates: start: 20100526
  5. PLAVIX [Concomitant]
     Dosage: UNK
     Dates: start: 20100427
  6. SIMVASTATIN [Concomitant]
     Dosage: UNK
     Dates: start: 20100428
  7. CARDEGIC [Concomitant]
     Dosage: UNK
     Dates: start: 20100428
  8. PLACEBO [Suspect]
     Indication: CORONARY ARTERY DISEASE
     Dosage: CODE NOT BROKEN
     Route: 048
     Dates: start: 20100526
  9. ISOPTIN [Concomitant]
     Dosage: UNK
     Dates: start: 20101201
  10. EUPRESSYL [Concomitant]
     Dosage: UNK
     Dates: start: 20100806

REACTIONS (4)
  - CHEST PAIN [None]
  - ANGINA PECTORIS [None]
  - CORONARY ANGIOPLASTY [None]
  - CONCOMITANT DISEASE PROGRESSION [None]
